FAERS Safety Report 9313310 (Version 1)
Quarter: 2013Q2

REPORT INFORMATION
  Report Type: Spontaneous
  Country: US (occurrence: US)
  Receive Date: 20130528
  Receipt Date: 20130528
  Transmission Date: 20140414
  Serious: No
  Sender: FDA-Public Use
  Company Number: US-ABBOTT-13P-163-1055409-00

PATIENT
  Age: 42 Year
  Sex: Male

DRUGS (3)
  1. ANDROGEL [Suspect]
     Indication: BLOOD TESTOSTERONE DECREASED
     Dosage: 2 PUMPS DAILY
     Dates: start: 201205, end: 201207
  2. ANDROGEL [Suspect]
     Dosage: 3 PUMPS DAILY
     Dates: start: 201207, end: 201211
  3. ANDROGEL [Suspect]
     Dosage: 4 PUMPS DAILY
     Dates: start: 201212

REACTIONS (1)
  - Blood testosterone abnormal [Not Recovered/Not Resolved]
